FAERS Safety Report 5033304-2 (Version None)
Quarter: 2006Q2

REPORT INFORMATION
  Report Type: 
  Country: None (occurrence: None)
  Receive Date: 20060511
  Receipt Date: 20060321
  Transmission Date: 20061013
  Serious: No
  Sender: FDA-Public Use
  Company Number: 200613430US

PATIENT
  Sex: Male

DRUGS (1)
  1. APIDRA [Suspect]
     Indication: DIABETES MELLITUS NON-INSULIN-DEPENDENT
     Dosage: 9-11 U
     Dates: start: 20060302

REACTIONS (3)
  - BLOOD GLUCOSE INCREASED [None]
  - GASTROINTESTINAL DISORDER [None]
  - POLLAKIURIA [None]
